FAERS Safety Report 12400364 (Version 1)
Quarter: 2016Q2

REPORT INFORMATION
  Report Type: Spontaneous
  Country: US (occurrence: None)
  Receive Date: 20160524
  Receipt Date: 20160524
  Transmission Date: 20160815
  Serious: No
  Sender: FDA-Public Use
  Company Number: None

PATIENT
  Sex: Male

DRUGS (3)
  1. RESTORIL [Suspect]
     Active Substance: TEMAZEPAM
  2. AMBIEN [Suspect]
     Active Substance: ZOLPIDEM TARTRATE
  3. LUNESTA [Concomitant]
     Active Substance: ESZOPICLONE

REACTIONS (4)
  - Drug ineffective [None]
  - Hypervigilance [None]
  - Hyperchlorhydria [None]
  - Energy increased [None]
